FAERS Safety Report 14593926 (Version 6)
Quarter: 2018Q2

REPORT INFORMATION
  Report Type: Spontaneous
  Country: CZ (occurrence: CZ)
  Receive Date: 20180302
  Receipt Date: 20180424
  Transmission Date: 20180711
  Serious: Yes (Other)
  Sender: FDA-Public Use
  Company Number: CZ-UCBSA-2018006191

PATIENT
  Age: 28 Year
  Sex: Female

DRUGS (12)
  1. VALPROIC ACID. [Concomitant]
     Active Substance: VALPROIC ACID
     Indication: GENERALISED TONIC-CLONIC SEIZURE
     Dosage: 1000 MG, 2X/DAY (BID)
     Route: 048
     Dates: start: 2008
  2. LAMOTRIGINE. [Concomitant]
     Active Substance: LAMOTRIGINE
     Indication: EPILEPSY
  3. PERAMPANEL [Concomitant]
     Active Substance: PERAMPANEL
     Indication: PRODUCT USED FOR UNKNOWN INDICATION
     Dosage: 2 MG
  4. LEVETIRACETAM. [Suspect]
     Active Substance: LEVETIRACETAM
     Indication: GENERALISED TONIC-CLONIC SEIZURE
     Dosage: 500 MG, 2X/DAY (BID)
     Route: 048
     Dates: start: 2015, end: 2015
  5. VALPROIC ACID. [Concomitant]
     Active Substance: VALPROIC ACID
     Indication: EPILEPSY
     Dosage: 750 MG, 2X/DAY (BID)
     Route: 048
     Dates: start: 2007, end: 2008
  6. PERAMPANEL [Concomitant]
     Active Substance: PERAMPANEL
     Dosage: 6 MG, ONCE DAILY (QD)
  7. LEVETIRACETAM. [Suspect]
     Active Substance: LEVETIRACETAM
     Indication: EPILEPSY
  8. LACOSAMIDE. [Suspect]
     Active Substance: LACOSAMIDE
     Indication: PRODUCT USED FOR UNKNOWN INDICATION
     Dosage: 150 MG, 2X/DAY (BID)
  9. VALPROIC ACID. [Concomitant]
     Active Substance: VALPROIC ACID
     Dosage: 250 MG, 2X/DAY (BID)
     Route: 048
     Dates: start: 2015
  10. LAMOTRIGINE. [Concomitant]
     Active Substance: LAMOTRIGINE
     Indication: GENERALISED TONIC-CLONIC SEIZURE
     Dosage: 150 MG, 2X/DAY (BID)
     Route: 048
     Dates: start: 2008
  11. PERAMPANEL [Concomitant]
     Active Substance: PERAMPANEL
     Dosage: 2 MG, EV 3 WEEKS
  12. LAMOTRIGINE. [Concomitant]
     Active Substance: LAMOTRIGINE
     Indication: SEIZURE

REACTIONS (4)
  - Dizziness [Unknown]
  - Seizure [Recovered/Resolved]
  - Headache [Recovered/Resolved]
  - Tremor [Recovered/Resolved]

NARRATIVE: CASE EVENT DATE: 2015
